FAERS Safety Report 13277708 (Version 2)
Quarter: 2017Q1

REPORT INFORMATION
  Report Type: Spontaneous
  Country: JP (occurrence: JP)
  Receive Date: 20170228
  Receipt Date: 20170306
  Transmission Date: 20170428
  Serious: No
  Sender: FDA-Public Use
  Company Number: JP-SA-2017SA033065

PATIENT
  Age: 56 Year
  Sex: Male

DRUGS (1)
  1. IRBETAN [Suspect]
     Active Substance: IRBESARTAN
     Route: 048

REACTIONS (1)
  - Loss of consciousness [Recovered/Resolved]
